FAERS Safety Report 8298028-7 (Version None)
Quarter: 2012Q2

REPORT INFORMATION
  Report Type: 
  Country: None (occurrence: None)
  Receive Date: 20120419
  Receipt Date: 20120413
  Transmission Date: 20120825
  Serious: Yes (Other)
  Sender: FDA-Public Use
  Company Number: US-BAYER-2012-037087

PATIENT

DRUGS (1)
  1. ALEVE (CAPLET) [Suspect]
     Dosage: UNK
     Route: 048

REACTIONS (3)
  - HALLUCINATION [None]
  - SOMATIC HALLUCINATION [None]
  - HALLUCINATION, VISUAL [None]
